FAERS Safety Report 22008538 (Version 2)
Quarter: 2023Q1

REPORT INFORMATION
  Report Type: Spontaneous
  Country: US (occurrence: US)
  Receive Date: 20230219
  Receipt Date: 20230307
  Transmission Date: 20230417
  Serious: No
  Sender: FDA-Public Use
  Company Number: US-SA-SAC20230214000897

PATIENT
  Age: 16 Year
  Sex: Male

DRUGS (2)
  1. ALPROLIX [Suspect]
     Active Substance: EFTRENONACOG ALFA
     Dosage: 2415 IU
     Route: 042
  2. ALPROLIX [Suspect]
     Active Substance: EFTRENONACOG ALFA
     Dosage: 2415 IU
     Route: 042

REACTIONS (2)
  - Circumcision [Unknown]
  - Drainage [Unknown]

NARRATIVE: CASE EVENT DATE: 20230201
